FAERS Safety Report 9974753 (Version 1)
Quarter: 2014Q1

REPORT INFORMATION
  Report Type: Spontaneous
  Country: US (occurrence: US)
  Receive Date: 20140306
  Receipt Date: 20140306
  Transmission Date: 20141002
  Serious: No
  Sender: FDA-Public Use
  Company Number: US-ABBVIE-13P-163-1156759-00

PATIENT
  Sex: Female
  Weight: 63.11 kg

DRUGS (4)
  1. HUMIRA [Suspect]
     Indication: UVEITIS
     Route: 058
     Dates: start: 201210
  2. WELLBUTRIN [Concomitant]
     Indication: ANXIETY
  3. DEPO-PROVERA [Concomitant]
     Indication: CONTRACEPTION
  4. DEPO-PROVERA [Concomitant]
     Indication: MIGRAINE

REACTIONS (3)
  - Vision blurred [Recovering/Resolving]
  - Vitreous floaters [Recovered/Resolved]
  - Injection site pain [Recovered/Resolved]
